FAERS Safety Report 9792075 (Version 1)
Quarter: 2014Q1

REPORT INFORMATION
  Report Type: Spontaneous
  Country: IN (occurrence: IN)
  Receive Date: 20140102
  Receipt Date: 20140102
  Transmission Date: 20141002
  Serious: Yes (Life-Threatening, Other)
  Sender: FDA-Public Use
  Company Number: IN-PFIZER INC-2013370778

PATIENT
  Age: 46 Year
  Sex: Female

DRUGS (7)
  1. RIFAMPICIN [Suspect]
     Indication: MYCOBACTERIUM TUBERCULOSIS COMPLEX TEST POSITIVE
     Dosage: UNK
  2. ISONIAZID [Concomitant]
     Indication: MYCOBACTERIUM TUBERCULOSIS COMPLEX TEST POSITIVE
     Dosage: UNK
  3. ISONIAZID [Concomitant]
     Indication: PULMONARY TUBERCULOSIS
  4. PYRAZINAMIDE [Concomitant]
     Indication: MYCOBACTERIUM TUBERCULOSIS COMPLEX TEST POSITIVE
     Dosage: UNK
  5. PYRAZINAMIDE [Concomitant]
     Indication: PULMONARY TUBERCULOSIS
  6. ETHAMBUTOL [Concomitant]
     Indication: MYCOBACTERIUM TUBERCULOSIS COMPLEX TEST POSITIVE
     Dosage: UNK
  7. ETHAMBUTOL [Concomitant]
     Indication: PULMONARY TUBERCULOSIS

REACTIONS (2)
  - Adrenocortical insufficiency acute [Recovered/Resolved]
  - Postpartum hypopituitarism [Recovered/Resolved]
